FAERS Safety Report 23425006 (Version 2)
Quarter: 2024Q1

REPORT INFORMATION
  Report Type: Report from Study
  Country: EG (occurrence: EG)
  Receive Date: 20240121
  Receipt Date: 20240125
  Transmission Date: 20240410
  Serious: Yes (Hospitalization, Other)
  Sender: FDA-Public Use
  Company Number: EG-002147023-NVSC2024EG010114

PATIENT
  Sex: Female

DRUGS (5)
  1. COSENTYX [Suspect]
     Active Substance: SECUKINUMAB
     Indication: Psoriatic arthropathy
     Dosage: 150 MG, EVERY WEEK FOR ONE MONTH THEN ONE PREFILLED SUBCUTANEOUS PEN EVERY 3 WEEKS (OFF LABEL DOSE)
     Route: 058
     Dates: start: 20210410, end: 202301
  2. COSENTYX [Suspect]
     Active Substance: SECUKINUMAB
     Dosage: 150 MG, EVERY WEEK FOR ONE MONTH THEN ONE PREFILLED SUBCUTANEOUS PEN EVERY 3 WEEKS (OFF LABEL DOSE)
     Route: 058
     Dates: start: 202310
  3. COSENTYX [Suspect]
     Active Substance: SECUKINUMAB
     Dosage: 150 MG, EVERY WEEK FOR ONE MONTH THEN ONE PREFILLED SUBCUTANEOUS PEN EVERY 3 WEEKS (OFF LABEL DOSE)
     Route: 065
     Dates: start: 202310
  4. COSENTYX [Suspect]
     Active Substance: SECUKINUMAB
     Dosage: 150 MG, 1 PEN MONTHLY
     Route: 058
  5. PLAVIX [Concomitant]
     Active Substance: CLOPIDOGREL BISULFATE
     Indication: Cardiac disorder
     Dosage: 1 DOSAGE FORM, QD (STARTED BEFORE COSENTYX)
     Route: 065

REACTIONS (15)
  - COVID-19 [Recovered/Resolved]
  - COVID-19 pneumonia [Recovered/Resolved]
  - Immunodeficiency [Recovering/Resolving]
  - Infection [Recovered/Resolved]
  - Psoriatic arthropathy [Recovering/Resolving]
  - Skin exfoliation [Unknown]
  - Blood uric acid increased [Not Recovered/Not Resolved]
  - Anaemia [Recovering/Resolving]
  - COVID-19 [Recovered/Resolved]
  - COVID-19 [Recovered/Resolved]
  - Influenza [Recovered/Resolved]
  - Nasopharyngitis [Recovered/Resolved]
  - Functional gastrointestinal disorder [Not Recovered/Not Resolved]
  - Haemoglobin decreased [Unknown]
  - Off label use [Unknown]

NARRATIVE: CASE EVENT DATE: 20210101
